FAERS Safety Report 6008563-X (Version None)
Quarter: 2008Q4

REPORT INFORMATION
  Report Type: 
  Country: None (occurrence: None)
  Receive Date: 20081217
  Receipt Date: 20081209
  Transmission Date: 20090506
  Serious: Yes (Hospitalization)
  Sender: FDA-Public Use
  Company Number: FR-B.I. PHARMACEUTICALS,INC./RIDGEFIELD-2008-FF-00887FF

PATIENT
  Sex: Female

DRUGS (2)
  1. MOBIC [Suspect]
     Route: 048
     Dates: start: 20080909, end: 20081009
  2. BREXIN [Concomitant]
     Route: 048
     Dates: end: 20080909

REACTIONS (1)
  - IDIOPATHIC THROMBOCYTOPENIC PURPURA [None]
